FAERS Safety Report 22215388 (Version 1)
Quarter: 2023Q2

REPORT INFORMATION
  Report Type: Spontaneous
  Country: US (occurrence: None)
  Receive Date: 20230416
  Receipt Date: 20230416
  Transmission Date: 20230721
  Serious: No
  Sender: FDA-Public Use
  Company Number: 2023A071178

PATIENT
  Sex: Female

DRUGS (3)
  1. LYNPARZA [Suspect]
     Active Substance: OLAPARIB
     Indication: Breast cancer female
     Route: 048
     Dates: start: 20220301
  2. LYNPARZA [Suspect]
     Active Substance: OLAPARIB
     Indication: Breast cancer female
     Route: 048
  3. LYNPARZA [Concomitant]
     Active Substance: OLAPARIB
     Indication: Breast cancer female
     Route: 048

REACTIONS (2)
  - Blood test abnormal [Recovered/Resolved]
  - Off label use [Not Recovered/Not Resolved]
